FAERS Safety Report 8879083 (Version 1)
Quarter: 2012Q4

REPORT INFORMATION
  Report Type: Spontaneous
  Country: US (occurrence: None)
  Receive Date: 20121031
  Receipt Date: 20121031
  Transmission Date: 20130627
  Serious: No
  Sender: FDA-Public Use
  Company Number: None

PATIENT
  Age: 51 Year
  Sex: Female
  Weight: 58.1 kg

DRUGS (3)
  1. PROPRANOLOL [Suspect]
     Indication: WEAKNESS
     Route: 048
     Dates: start: 20120831, end: 20121003
  2. PROPRANOLOL [Suspect]
     Indication: DIZZINESS
     Route: 048
     Dates: start: 20120831, end: 20121003
  3. PREGABALIN [Suspect]
     Route: 048
     Dates: start: 20120924, end: 20121003

REACTIONS (3)
  - Vision blurred [None]
  - Dizziness [None]
  - Feeling abnormal [None]
